FAERS Safety Report 4934162-4 (Version None)
Quarter: 2006Q1

REPORT INFORMATION
  Report Type: 
  Country: None (occurrence: None)
  Receive Date: 20060301
  Receipt Date: 20060216
  Transmission Date: 20060701
  Serious: Yes (Other)
  Sender: FDA-Public Use
  Company Number: 222241

PATIENT
  Age: 55 Year
  Sex: Female
  Weight: 75.2 kg

DRUGS (7)
  1. RITUXIMAB(RITUXIMAB) CONC FOR SOLUTION FOR INFUSION [Suspect]
     Indication: RHEUMATOID ARTHRITIS
     Dosage: 1000MG, DAYS 1 + 15, INTRAVENOUS
     Route: 042
     Dates: start: 20051222
  2. METHYLPREDNISOLONE [Suspect]
     Indication: RHEUMATOID ARTHRITIS
     Dosage: 100 MG, DAYS 1 + 15, INTRAVENOUS
     Route: 042
     Dates: start: 20051222
  3. PREDNISONE TAB [Suspect]
     Indication: RHEUMATOID ARTHRITIS
     Dosage: ORAL
     Route: 048
     Dates: start: 20051223, end: 20051230
  4. LEVOXYL [Concomitant]
  5. FOLIC ACID [Concomitant]
  6. DICLOFENAC SODIUM [Concomitant]
  7. METHOTREXATE [Concomitant]

REACTIONS (3)
  - BLOOD PRESSURE SYSTOLIC INCREASED [None]
  - LACUNAR INFARCTION [None]
  - PARAESTHESIA [None]
